FAERS Safety Report 18475168 (Version 2)
Quarter: 2020Q4

REPORT INFORMATION
  Report Type: Spontaneous
  Country: FR (occurrence: FR)
  Receive Date: 20201106
  Receipt Date: 20201119
  Transmission Date: 20210114
  Serious: Yes (Other)
  Sender: FDA-Public Use
  Company Number: FR-AFSSAPS-PO20201310

PATIENT
  Age: 46 Year
  Sex: Male

DRUGS (3)
  1. LOXAPAC [LOXAPINE SUCCINATE] [Suspect]
     Active Substance: LOXAPINE SUCCINATE
     Indication: PRODUCT USED FOR UNKNOWN INDICATION
     Dosage: 75 MILLIGRAM,, UNK
     Route: 065
     Dates: start: 20200925, end: 20200925
  2. SUBUTEX [Suspect]
     Active Substance: BUPRENORPHINE HYDROCHLORIDE
     Indication: PRODUCT SUBSTITUTION
     Dosage: 36 MILLIGRAM, UNK
     Route: 060
     Dates: start: 20200925, end: 20200925
  3. NORSET [Suspect]
     Active Substance: MIRTAZAPINE
     Indication: BIPOLAR DISORDER
     Dosage: 30 DOSAGE FORM, QD
     Route: 048
     Dates: start: 20200925, end: 20200925

REACTIONS (3)
  - Somnolence [Recovered/Resolved]
  - Intentional product use issue [Recovered/Resolved]
  - Poisoning deliberate [Recovered/Resolved]

NARRATIVE: CASE EVENT DATE: 20200827
